FAERS Safety Report 5950224-7 (Version None)
Quarter: 2008Q4

REPORT INFORMATION
  Report Type: 
  Country: None (occurrence: None)
  Receive Date: 20081112
  Receipt Date: 20081103
  Transmission Date: 20090506
  Serious: Yes (Death)
  Sender: FDA-Public Use
  Company Number: B0545770A

PATIENT
  Age: 73 Year
  Sex: Female

DRUGS (2)
  1. CEFUROXIME AXETIL [Suspect]
     Indication: URINARY TRACT INFECTION
     Dosage: 500MG TWICE PER DAY
     Route: 048
  2. FUROSEMIDE [Suspect]
     Indication: RENAL FAILURE CHRONIC

REACTIONS (26)
  - ARTHRALGIA [None]
  - BLISTER [None]
  - BODY TEMPERATURE INCREASED [None]
  - DRUG INTERACTION [None]
  - EPIDERMAL NECROSIS [None]
  - GASTROINTESTINAL HAEMORRHAGE [None]
  - GRANULOCYTOPENIA [None]
  - HYPERTENSION [None]
  - KERATITIS [None]
  - LEUKOPENIA [None]
  - MALAISE [None]
  - MOUTH ULCERATION [None]
  - MULTI-ORGAN FAILURE [None]
  - NIKOLSKY'S SIGN [None]
  - OESOPHAGITIS HAEMORRHAGIC [None]
  - PROTEIN TOTAL DECREASED [None]
  - PRURITUS [None]
  - PYREXIA [None]
  - RASH [None]
  - SEPSIS [None]
  - SKIN DISORDER [None]
  - SKIN EXFOLIATION [None]
  - SKIN LESION [None]
  - SKIN OEDEMA [None]
  - STAPHYLOCOCCAL INFECTION [None]
  - TOXIC EPIDERMAL NECROLYSIS [None]
